FAERS Safety Report 7764132-2 (Version None)
Quarter: 2011Q3

REPORT INFORMATION
  Report Type: 
  Country: None (occurrence: None)
  Receive Date: 20110921
  Receipt Date: 20110912
  Transmission Date: 20111222
  Serious: Yes (Other)
  Sender: FDA-Public Use
  Company Number: US-US-EMD SERONO, INC.-7078235

PATIENT
  Sex: Female

DRUGS (3)
  1. CYMBALTA [Concomitant]
  2. NEURONTIN [Concomitant]
  3. REBIF [Suspect]
     Indication: MULTIPLE SCLEROSIS
     Route: 058
     Dates: start: 20060517

REACTIONS (4)
  - MULTIPLE SCLEROSIS RELAPSE [None]
  - EAR INFECTION [None]
  - EMOTIONAL DISTRESS [None]
  - ACOUSTIC NEUROMA [None]
